FAERS Safety Report 25899854 (Version 1)
Quarter: 2025Q4

REPORT INFORMATION
  Report Type: Report from Study
  Country: IN (occurrence: IN)
  Receive Date: 20251009
  Receipt Date: 20251009
  Transmission Date: 20260119
  Serious: Yes (Other)
  Sender: CIPLA
  Company Number: IN-CIPLA LTD.-2025IN12194

PATIENT

DRUGS (3)
  1. LEVETIRACETAM [Suspect]
     Active Substance: LEVETIRACETAM
     Indication: Seizure
     Dosage: (1-0-1 AND A HALF), BID
     Route: 048
     Dates: start: 20250811, end: 20250830
  2. CLOBAZAM [Concomitant]
     Active Substance: CLOBAZAM
     Indication: Product used for unknown indication
     Dosage: 10 MILLIGRAM, BID (1-0-1)
     Route: 065
     Dates: start: 20250811, end: 20250903
  3. LACOSAMIDE [Concomitant]
     Active Substance: LACOSAMIDE
     Indication: Product used for unknown indication
     Dosage: 50 MILLIGRAM, BID (1-0-1)
     Route: 065
     Dates: start: 20250811, end: 20250903

REACTIONS (4)
  - Adverse event [Recovered/Resolved]
  - Abdominal pain upper [Recovered/Resolved]
  - Behaviour disorder [Recovered/Resolved]
  - Alopecia [Recovered/Resolved]

NARRATIVE: CASE EVENT DATE: 20250817
